FAERS Safety Report 9383095 (Version 1)
Quarter: 2013Q3

REPORT INFORMATION
  Report Type: Spontaneous
  Country: GB (occurrence: GB)
  Receive Date: 20130704
  Receipt Date: 20130704
  Transmission Date: 20140515
  Serious: Yes (Other)
  Sender: FDA-Public Use
  Company Number: GB-JNJFOC-20130700609

PATIENT
  Sex: Male

DRUGS (1)
  1. NICORETTE QUICKMIST 1MG NICO-SPRAY [Suspect]
     Indication: EX-TOBACCO USER
     Dosage: 2 TO 3 SPRAYS PER WEEK
     Route: 065
     Dates: start: 201211

REACTIONS (2)
  - Nicotine dependence [Unknown]
  - Intentional drug misuse [Unknown]
